FAERS Safety Report 23210995 (Version 6)
Quarter: 2024Q2

REPORT INFORMATION
  Report Type: Report from Study
  Country: ES (occurrence: ES)
  Receive Date: 20231121
  Receipt Date: 20240621
  Transmission Date: 20240716
  Serious: Yes (Hospitalization)
  Sender: FDA-Public Use
  Company Number: ES-Merck Healthcare KGaA-2023487214

PATIENT
  Age: 75 Year
  Sex: Male
  Weight: 88 kg

DRUGS (4)
  1. AVELUMAB [Suspect]
     Active Substance: AVELUMAB
     Indication: Transitional cell carcinoma
     Dates: start: 20231011, end: 20231117
  2. HIBOR [Concomitant]
     Indication: Pulmonary thrombosis
     Route: 058
     Dates: start: 202209
  3. ATORVASTATINA [ATORVASTATIN CALCIUM] [Concomitant]
     Indication: Prophylaxis
     Route: 048
  4. CHOLECALCIFEROL [Concomitant]
     Active Substance: CHOLECALCIFEROL
     Indication: Prophylaxis
     Dosage: FREQUENCY: MONTH
     Route: 048

REACTIONS (5)
  - Neurotoxicity [Recovered/Resolved]
  - Dysphagia [Recovered/Resolved]
  - Hepatitis [Recovered/Resolved]
  - Pulmonary embolism [Recovered/Resolved]
  - Urinary tract infection [Recovered/Resolved]

NARRATIVE: CASE EVENT DATE: 20231105
